FAERS Safety Report 4824568-6 (Version None)
Quarter: 2005Q4

REPORT INFORMATION
  Report Type: 
  Country: None (occurrence: None)
  Receive Date: 20051108
  Receipt Date: 20051026
  Transmission Date: 20060501
  Serious: Yes (Hospitalization)
  Sender: FDA-Public Use
  Company Number: 8013005

PATIENT
  Age: 48 Year
  Sex: Female
  Weight: 60 kg

DRUGS (4)
  1. KEPPRA [Suspect]
     Dosage: ONCE PO
     Route: 048
     Dates: start: 20051025, end: 20051025
  2. RIVOTRIL [Suspect]
     Dosage: 1/D PO
     Route: 048
     Dates: start: 20051025, end: 20051025
  3. TRILEPTAL [Suspect]
     Dosage: ONCE PO
     Route: 048
     Dates: start: 20051025, end: 20051025
  4. ZYPREXA [Suspect]
     Dosage: ONCE PO
     Route: 048
     Dates: start: 20051025, end: 20051025

REACTIONS (5)
  - BLOOD SODIUM DECREASED [None]
  - BRADYCARDIA [None]
  - COMA [None]
  - MIOSIS [None]
  - SUICIDAL IDEATION [None]
